FAERS Safety Report 8016888-1 (Version None)
Quarter: 2012Q1

REPORT INFORMATION
  Report Type: 
  Country: None (occurrence: None)
  Receive Date: 20120102
  Receipt Date: 20111220
  Transmission Date: 20120608
  Serious: Yes (Hospitalization, Other)
  Sender: FDA-Public Use
  Company Number: PHHY2011JP098757

PATIENT
  Age: 39 Year
  Sex: Male

DRUGS (13)
  1. NEORAL [Suspect]
     Indication: COLITIS ULCERATIVE
     Route: 048
     Dates: start: 20050601
  2. NEORAL [Suspect]
     Dosage: 200 MG, UNK
     Route: 048
     Dates: start: 20111024
  3. INTRAFAT [Concomitant]
  4. VITAMEDIN [Concomitant]
     Route: 048
  5. FOSMICIN [Concomitant]
     Route: 048
  6. LIPITOR [Concomitant]
     Route: 048
  7. FAMOTIDINE [Concomitant]
     Route: 048
  8. NEORAL [Suspect]
     Dosage: 150 MG, UNK
     Route: 048
     Dates: start: 20111102
  9. SANDIMMUNE [Concomitant]
     Indication: COLITIS ULCERATIVE
     Route: 041
     Dates: start: 20050101
  10. PHYSIO 35 [Concomitant]
  11. ASACOL [Concomitant]
     Route: 048
  12. BIO THREE [Concomitant]
     Route: 048
  13. NEORAL [Suspect]
     Dosage: 150 MG, UNK
     Route: 048
     Dates: start: 20111005

REACTIONS (5)
  - RENAL IMPAIRMENT [None]
  - BLOOD CREATININE INCREASED [None]
  - COLITIS ULCERATIVE [None]
  - RENAL DISORDER [None]
  - IMMUNOSUPPRESSANT DRUG LEVEL INCREASED [None]
